FAERS Safety Report 8005162-5 (Version None)
Quarter: 2011Q4

REPORT INFORMATION
  Report Type: 
  Country: None (occurrence: None)
  Receive Date: 20111223
  Receipt Date: 20111214
  Transmission Date: 20120403
  Serious: Yes (Death)
  Sender: FDA-Public Use
  Company Number: CH-SANOFI-AVENTIS-2011SA082185

PATIENT
  Age: 84 Year
  Sex: Male

DRUGS (7)
  1. ASPIRIN [Concomitant]
     Indication: ATRIAL FLUTTER
     Route: 048
  2. MULTAQ [Suspect]
     Route: 048
     Dates: start: 20010601, end: 20111128
  3. MULTAQ [Suspect]
     Indication: ATRIAL FIBRILLATION
     Route: 048
     Dates: start: 20010601, end: 20111128
  4. MULTAQ [Suspect]
     Indication: ATRIAL FLUTTER
     Route: 048
     Dates: start: 20010601, end: 20111128
  5. FLUOXETINE [Suspect]
     Route: 048
     Dates: end: 20111128
  6. FLUTICASONE PROPIONATE/SALMETEROL [Concomitant]
     Indication: CHRONIC OBSTRUCTIVE PULMONARY DISEASE
     Route: 055
  7. ASPIRIN [Concomitant]
     Indication: ATRIAL FIBRILLATION
     Route: 048

REACTIONS (7)
  - ATRIAL FIBRILLATION [None]
  - CARDIAC FAILURE [None]
  - OFF LABEL USE [None]
  - DIARRHOEA [None]
  - DEHYDRATION [None]
  - RENAL FAILURE CHRONIC [None]
  - HEPATOCELLULAR INJURY [None]
